FAERS Safety Report 25023827 (Version 2)
Quarter: 2025Q3

REPORT INFORMATION
  Report Type: Spontaneous
  Country: US (occurrence: US)
  Receive Date: 20250228
  Receipt Date: 20250803
  Transmission Date: 20251021
  Serious: Yes (Other)
  Sender: ALEXION PHARMACEUTICALS
  Company Number: US-AstraZeneca-CH-00812826A

PATIENT
  Sex: Female

DRUGS (2)
  1. BRILINTA [Suspect]
     Active Substance: TICAGRELOR
     Route: 065
  2. CRESTOR [Suspect]
     Active Substance: ROSUVASTATIN CALCIUM
     Route: 065

REACTIONS (6)
  - Chronic kidney disease [Not Recovered/Not Resolved]
  - Renal impairment [Unknown]
  - Glomerular filtration rate abnormal [Unknown]
  - Blood creatinine increased [Not Recovered/Not Resolved]
  - Myalgia [Unknown]
  - Bone pain [Unknown]
